FAERS Safety Report 10154381 (Version 3)
Quarter: 2014Q3

REPORT INFORMATION
  Report Type: Spontaneous
  Country: US (occurrence: US)
  Receive Date: 20140506
  Receipt Date: 20140701
  Transmission Date: 20150326
  Serious: No
  Sender: FDA-Public Use
  Company Number: US-PFIZER INC-2014121303

PATIENT
  Age: 44 Year
  Sex: Female

DRUGS (1)
  1. XELJANZ [Suspect]
     Active Substance: TOFACITINIB CITRATE
     Indication: RHEUMATOID ARTHRITIS
     Dosage: UNK
     Dates: start: 201304

REACTIONS (8)
  - Dyspepsia [Unknown]
  - Back disorder [Unknown]
  - Feeling abnormal [Unknown]
  - Intervertebral disc protrusion [Unknown]
  - Decreased appetite [Unknown]
  - Peripheral swelling [Unknown]
  - Fatigue [Unknown]
  - Grip strength decreased [Unknown]

NARRATIVE: CASE EVENT DATE: 20140429
